FAERS Safety Report 5921891-9 (Version None)
Quarter: 2008Q4

REPORT INFORMATION
  Report Type: 
  Country: None (occurrence: None)
  Receive Date: 20081017
  Receipt Date: 20081006
  Transmission Date: 20090506
  Serious: Yes (Other)
  Sender: FDA-Public Use
  Company Number: US-ROCHE-589807

PATIENT
  Age: 70 Year
  Sex: Female

DRUGS (1)
  1. BONIVA [Suspect]
     Indication: DRUG USE FOR UNKNOWN INDICATION
     Dosage: SECOND DOSE IN MARCH 2008, MOST RECENT DOSE ON 26 JUNE 2008
     Route: 042
     Dates: start: 20071001

REACTIONS (2)
  - HIP ARTHROPLASTY [None]
  - PAIN IN EXTREMITY [None]
